FAERS Safety Report 7827429-3 (Version None)
Quarter: 2011Q4

REPORT INFORMATION
  Report Type: 
  Country: None (occurrence: None)
  Receive Date: 20111020
  Receipt Date: 20111011
  Transmission Date: 20120403
  Serious: Yes (Other)
  Sender: FDA-Public Use
  Company Number: US-BAYER-2011-098448

PATIENT
  Age: 45 Year
  Sex: Female

DRUGS (1)
  1. YASMIN [Suspect]
     Dosage: UNK
     Route: 048
     Dates: start: 19990101, end: 20051201

REACTIONS (5)
  - EMOTIONAL DISTRESS [None]
  - CHOLECYSTECTOMY [None]
  - IRRITABLE BOWEL SYNDROME [None]
  - INJURY [None]
  - PAIN [None]
